FAERS Safety Report 9191313 (Version 1)
Quarter: 2013Q1

REPORT INFORMATION
  Report Type: Spontaneous
  Country: GB (occurrence: GB)
  Receive Date: 20130326
  Receipt Date: 20130326
  Transmission Date: 20140127
  Serious: Yes (Death)
  Sender: FDA-Public Use
  Company Number: GB-PFIZER INC-2007332621

PATIENT
  Age: 67 Year
  Sex: Female

DRUGS (2)
  1. IBUPROFEN [Suspect]
     Dosage: UNSPECIFIED
     Route: 065
  2. SALICYLIC ACID [Suspect]
     Dosage: UNSPECIFIED
     Route: 065

REACTIONS (10)
  - Overdose [Fatal]
  - Cardiac arrest [Fatal]
  - Circulatory collapse [Fatal]
  - Feeling cold [Fatal]
  - Hyperventilation [Fatal]
  - Hypotension [Fatal]
  - Vomiting [Fatal]
  - Coma [Fatal]
  - Deafness [Fatal]
  - Confusional state [Fatal]
